FAERS Safety Report 8776856 (Version 2)
Quarter: 2012Q4

REPORT INFORMATION
  Report Type: 
  Country: US (occurrence: US)
  Receive Date: 20120911
  Receipt Date: 20121024
  Transmission Date: 20130627
  Serious: No
  Sender: FDA-Public Use
  Company Number: US-PFIZER INC-2012213052

PATIENT
  Age: 58 Year
  Sex: Male
  Weight: 108 kg

DRUGS (2)
  1. CELEBREX [Suspect]
     Indication: RHEUMATOID ARTHRITIS
     Dosage: UNK, 2x/day
     Route: 048
     Dates: end: 201207
  2. HUMIRA [Concomitant]
     Dosage: UNK

REACTIONS (2)
  - Arthritis [Unknown]
  - Pain [Not Recovered/Not Resolved]
